FAERS Safety Report 12480006 (Version 1)
Quarter: 2016Q2

REPORT INFORMATION
  Report Type: Spontaneous
  Country: US (occurrence: US)
  Receive Date: 20160620
  Receipt Date: 20160620
  Transmission Date: 20160815
  Serious: No
  Sender: FDA-Public Use
  Company Number: US-JNJFOC-20160420879

PATIENT
  Age: 45 Year
  Sex: Male
  Weight: 107.96 kg

DRUGS (3)
  1. SIMPONI [Suspect]
     Active Substance: GOLIMUMAB
     Indication: ANKYLOSING SPONDYLITIS
     Route: 058
  2. TESTOSTERONE. [Concomitant]
     Active Substance: TESTOSTERONE
     Route: 030
  3. SIMPONI [Suspect]
     Active Substance: GOLIMUMAB
     Indication: ANKYLOSING SPONDYLITIS
     Route: 058
     Dates: start: 2015

REACTIONS (8)
  - Ankylosing spondylitis [Not Recovered/Not Resolved]
  - Accidental exposure to product [Unknown]
  - Poor quality drug administered [Unknown]
  - Bedridden [Unknown]
  - Drug dose omission [Unknown]
  - Device malfunction [Unknown]
  - Inappropriate schedule of drug administration [Unknown]
  - Pain [Recovered/Resolved]

NARRATIVE: CASE EVENT DATE: 20160420
